FAERS Safety Report 24223801 (Version 1)
Quarter: 2024Q3

REPORT INFORMATION
  Report Type: Spontaneous
  Country: US (occurrence: US)
  Receive Date: 20240819
  Receipt Date: 20240819
  Transmission Date: 20241017
  Serious: No
  Sender: ARCUTIS
  Company Number: US-ARCUTIS BIOTHERAPEUTICS INC-2024AER000161

PATIENT

DRUGS (3)
  1. ZORYVE [Suspect]
     Active Substance: ROFLUMILAST
     Indication: Psoriasis
     Dosage: UNK
     Route: 061
  2. ZORYVE [Suspect]
     Active Substance: ROFLUMILAST
     Dosage: UNK
     Route: 061
  3. BUPRENORPHINE [Concomitant]
     Active Substance: BUPRENORPHINE
     Indication: Drug dependence
     Dosage: 2 MILLIGRAM, QD

REACTIONS (4)
  - Lethargy [Unknown]
  - Dizziness [Unknown]
  - Confusional state [Unknown]
  - Feeling jittery [Unknown]
